FAERS Safety Report 16470698 (Version 1)
Quarter: 2019Q2

REPORT INFORMATION
  Report Type: Spontaneous
  Country: US (occurrence: US)
  Receive Date: 20190624
  Receipt Date: 20190624
  Transmission Date: 20190711
  Serious: No
  Sender: FDA-Public Use
  Company Number: US-CATALYST PHARMACEUTICALS, INC-2019CAT00093

PATIENT
  Age: 73 Year
  Sex: Female
  Weight: 45.35 kg

DRUGS (9)
  1. UNSPECIFIED THYROID MEDICATION [Concomitant]
     Active Substance: UNSPECIFIED INGREDIENT
  2. GABAPENTIN. [Concomitant]
     Active Substance: GABAPENTIN
  3. UNSPECIFIED CHOLESTEROL MEDICATION [Concomitant]
     Active Substance: UNSPECIFIED INGREDIENT
  4. VITAMIN D [Concomitant]
     Active Substance: VITAMIN D NOS
  5. CALCIUM [Concomitant]
     Active Substance: CALCIUM
  6. FIRDAPSE [Suspect]
     Active Substance: AMIFAMPRIDINE
     Indication: MYASTHENIC SYNDROME
     Dosage: 5 MG, 3X/DAY
     Route: 048
     Dates: start: 20190331, end: 20190406
  7. FIRDAPSE [Suspect]
     Active Substance: AMIFAMPRIDINE
     Dosage: 5 MG, 4X/DAY
     Route: 048
     Dates: start: 20190407, end: 20190412
  8. FIRDAPSE [Suspect]
     Active Substance: AMIFAMPRIDINE
     Dosage: 5 MG, 3X/DAY
     Route: 048
     Dates: start: 20190421
  9. MESTINON [Suspect]
     Active Substance: PYRIDOSTIGMINE BROMIDE
     Dosage: UNK

REACTIONS (6)
  - Oropharyngeal discomfort [Recovering/Resolving]
  - Cough [Not Recovered/Not Resolved]
  - Rhinorrhoea [Not Recovered/Not Resolved]
  - Oropharyngeal pain [Recovering/Resolving]
  - Hypersensitivity [Unknown]
  - Upper respiratory tract infection [Unknown]

NARRATIVE: CASE EVENT DATE: 20190407
